FAERS Safety Report 23517056 (Version 1)
Quarter: 2024Q1

REPORT INFORMATION
  Report Type: 
  Country: None (occurrence: None)
  Receive Date: 20240213
  Receipt Date: 20240213
  Transmission Date: 20240410
  Serious: No
  Sender: FDA-Public Use
  Company Number: None

PATIENT

DRUGS (3)
  1. RITUXIMAB [Suspect]
     Active Substance: RITUXIMAB
     Dosage: 375MG/M2
     Dates: start: 201708, end: 201802
  2. CYTARABINE [Suspect]
     Active Substance: CYTARABINE
     Dosage: 500 MG/M2 FOR 3 CONSECUTIVE DAYS FOR 6 CYCLES
     Dates: start: 201708, end: 201802
  3. BENDAMUSTINE [Suspect]
     Active Substance: BENDAMUSTINE
     Dosage: 70 MG/M2 FOR 2 CONSECUTIVE DAYS FOR 6 CYCLES
     Dates: start: 201708, end: 201802

REACTIONS (1)
  - Myelodysplastic syndrome [None]

NARRATIVE: CASE EVENT DATE: 20230801
